FAERS Safety Report 8560331-0 (Version None)
Quarter: 2012Q3

REPORT INFORMATION
  Report Type: 
  Country: None (occurrence: None)
  Receive Date: 20120802
  Receipt Date: 20120719
  Transmission Date: 20120928
  Serious: Yes (Other)
  Sender: FDA-Public Use
  Company Number: US-ELI_LILLY_AND_COMPANY-US201207006283

PATIENT
  Age: 33 Year
  Sex: Female

DRUGS (2)
  1. CYMBALTA [Suspect]
     Indication: DEPRESSION
     Dosage: 60 MG, QD
     Dates: end: 20120715
  2. ZYPREXA [Suspect]
     Indication: WITHDRAWAL SYNDROME
     Dosage: 10 MG, EACH EVENING
     Dates: start: 20120601

REACTIONS (20)
  - TREMOR [None]
  - ANAPHYLACTIC REACTION [None]
  - OEDEMA MOUTH [None]
  - LIP SWELLING [None]
  - NAUSEA [None]
  - VOMITING [None]
  - THINKING ABNORMAL [None]
  - PRESYNCOPE [None]
  - WHEEZING [None]
  - SWOLLEN TONGUE [None]
  - WITHDRAWAL SYNDROME [None]
  - HYPERHIDROSIS [None]
  - BODY TEMPERATURE FLUCTUATION [None]
  - PARAESTHESIA [None]
  - MOOD SWINGS [None]
  - INTENTIONAL DRUG MISUSE [None]
  - URTICARIA [None]
  - OFF LABEL USE [None]
  - COLD SWEAT [None]
  - DIARRHOEA [None]
